FAERS Safety Report 8328398-2 (Version None)
Quarter: 2012Q2

REPORT INFORMATION
  Report Type: 
  Country: None (occurrence: None)
  Receive Date: 20120502
  Receipt Date: 20100804
  Transmission Date: 20120825
  Serious: No
  Sender: FDA-Public Use
  Company Number: US-TEVA-2010003587

PATIENT
  Sex: Female

DRUGS (1)
  1. NUVIGIL [Suspect]
     Dosage: 150 MILLIGRAM;
     Route: 048
     Dates: start: 20100211, end: 20100404

REACTIONS (3)
  - MUSCLE TIGHTNESS [None]
  - NECK PAIN [None]
  - HEADACHE [None]
